FAERS Safety Report 13824949 (Version 1)
Quarter: 2017Q3

REPORT INFORMATION
  Report Type: Spontaneous
  Country: HR (occurrence: HR)
  Receive Date: 20170802
  Receipt Date: 20170802
  Transmission Date: 20171127
  Serious: Yes (Other)
  Sender: FDA-Public Use
  Company Number: HR-PFIZER INC-2017329426

PATIENT
  Age: 43 Year
  Sex: Male

DRUGS (5)
  1. SANVAL [Suspect]
     Active Substance: ZOLPIDEM TARTRATE
     Dosage: 5 MG, UNK
     Route: 048
     Dates: start: 20170602, end: 20170602
  2. HELEX [Suspect]
     Active Substance: ALPRAZOLAM
     Dosage: 1 MG, UNK
     Route: 048
     Dates: start: 20170602, end: 20170602
  3. LEKOTAM [Suspect]
     Active Substance: BROMAZEPAM
     Dosage: UNK
     Route: 048
     Dates: start: 20170602, end: 20170602
  4. NORPREXANIL [Suspect]
     Active Substance: UNSPECIFIED INGREDIENT
     Dosage: DF 5 MG PERINDOPRIL ARGININE + 5 MG AMLODIPINE
     Route: 048
     Dates: start: 20170602, end: 20170602
  5. ZOLOFT [Suspect]
     Active Substance: SERTRALINE HYDROCHLORIDE
     Dosage: UNK
     Route: 048
     Dates: start: 20170602, end: 20170602

REACTIONS (2)
  - Suicide attempt [Unknown]
  - Somnolence [Unknown]

NARRATIVE: CASE EVENT DATE: 20170602
